FAERS Safety Report 4378795-5 (Version None)
Quarter: 2004Q2

REPORT INFORMATION
  Report Type: 
  Country: None (occurrence: None)
  Receive Date: 20040609
  Receipt Date: 20040527
  Transmission Date: 20050107
  Serious: Yes (Other)
  Sender: FDA-Public Use
  Company Number: 2004035959

PATIENT
  Age: 50 Year
  Sex: Female
  Weight: 52.1637 kg

DRUGS (4)
  1. NEURONTIN [Suspect]
     Indication: AFFECTIVE DISORDER
     Dosage: ORAL
     Route: 048
     Dates: start: 20010101, end: 20040526
  2. ANTIDEPRESSANTS (ANTIDEPRESSANTS) [Concomitant]
  3. CHOLESTEROL (CHOLESTEROL) [Concomitant]
  4. ALL OTHER THERAPEUTIC PRODUCTS (ALL OTHER THERAPEUTIC PRODUCTS) [Concomitant]

REACTIONS (4)
  - EYELID FUNCTION DISORDER [None]
  - FEELING ABNORMAL [None]
  - INCOHERENT [None]
  - TREATMENT NONCOMPLIANCE [None]
